FAERS Safety Report 8680242 (Version 3)
Quarter: 2012Q4

REPORT INFORMATION
  Report Type: 
  Country: FR (occurrence: FR)
  Receive Date: 20120724
  Receipt Date: 20120925
  Transmission Date: 20130627
  Serious: Yes (Other)
  Sender: FDA-Public Use
  Company Number: FR-ROCHE-1091566

PATIENT
  Age: 79 Year
  Sex: Female
  Weight: 70 kg

DRUGS (2)
  1. LUCENTIS [Suspect]
     Indication: RETINAL VEIN OCCLUSION
     Route: 050
     Dates: start: 20120625
  2. PREVISCAN [Concomitant]

REACTIONS (3)
  - Macular ischaemia [Unknown]
  - Glaucoma [Not Recovered/Not Resolved]
  - Drug ineffective [Unknown]
